FAERS Safety Report 7476849-8 (Version None)
Quarter: 2011Q2

REPORT INFORMATION
  Report Type: 
  Country: None (occurrence: None)
  Receive Date: 20110512
  Receipt Date: 20110504
  Transmission Date: 20111010
  Serious: Yes (Death, Hospitalization, Other)
  Sender: FDA-Public Use
  Company Number: US-ELI_LILLY_AND_COMPANY-US201105000958

PATIENT
  Age: 88 Year
  Sex: Male

DRUGS (5)
  1. PEMETREXED [Suspect]
     Dosage: 600 MG/M2, TRIWEEKLY
     Route: 065
  2. PEMETREXED [Suspect]
     Indication: LYMPHOMA
     Dosage: 500 MG/M2, TRIWEEKLY
     Route: 065
  3. NEULASTA [Concomitant]
     Dosage: 4 MG, UNKNOWN
     Route: 065
  4. PEMETREXED [Suspect]
     Dosage: 600 MG/M2, TRIWEEKLY
     Route: 065
  5. PEMETREXED [Suspect]
     Dosage: 500 MG/M2, TRIWEEKLY
     Route: 065

REACTIONS (6)
  - DEATH [None]
  - ANAEMIA [None]
  - RENAL FAILURE ACUTE [None]
  - HYPOTENSION [None]
  - RESPIRATORY FAILURE [None]
  - URINARY TRACT INFECTION [None]
